FAERS Safety Report 16665026 (Version 2)
Quarter: 2021Q3

REPORT INFORMATION
  Report Type: Spontaneous
  Country: US (occurrence: US)
  Receive Date: 20190803
  Receipt Date: 20210809
  Transmission Date: 20211014
  Serious: Yes (Other)
  Sender: FDA-Public Use
  Company Number: US-ACCORD-071029

PATIENT
  Age: 50 Year
  Sex: Female
  Weight: 89.81 kg

DRUGS (20)
  1. SALONPAS PAIN RELIEF [Concomitant]
     Active Substance: MENTHOL\METHYL SALICYLATE
     Dates: start: 201101
  2. FLUTICASONE. [Concomitant]
     Active Substance: FLUTICASONE
     Dates: start: 200501
  3. LANSOPRAZOLE. [Concomitant]
     Active Substance: LANSOPRAZOLE
  4. HYDROCODONE [Concomitant]
     Active Substance: HYDROCODONE
  5. ASTELIN [Concomitant]
     Active Substance: AZELASTINE HYDROCHLORIDE
     Dates: start: 201001
  6. PROMETHAZINE [Concomitant]
     Active Substance: PROMETHAZINE HYDROCHLORIDE
  7. NEOSAR [Suspect]
     Active Substance: CYCLOPHOSPHAMIDE
     Indication: BREAST CANCER
  8. LIDOCAINE. [Concomitant]
     Active Substance: LIDOCAINE
     Dates: start: 201101
  9. IPRATROPIUM [Concomitant]
     Active Substance: IPRATROPIUM
     Dates: start: 201001
  10. WARFARIN [Concomitant]
     Active Substance: WARFARIN
  11. FLUOROURACIL. [Suspect]
     Active Substance: FLUOROURACIL
     Indication: BREAST CANCER
  12. LISINOPRIL. [Concomitant]
     Active Substance: LISINOPRIL
     Dates: start: 20100611
  13. MELOXICAM. [Concomitant]
     Active Substance: MELOXICAM
     Dates: start: 20090101
  14. IRON [Concomitant]
     Active Substance: IRON
     Dates: start: 200901
  15. DICLOFENAC [Concomitant]
     Active Substance: DICLOFENAC
     Dates: start: 201101
  16. FLUOXETINE [Concomitant]
     Active Substance: FLUOXETINE HYDROCHLORIDE
  17. DOCETAXEL ACCORD [Suspect]
     Active Substance: DOCETAXEL
     Indication: BREAST CANCER
     Dates: start: 20110721, end: 20110921
  18. DOXORUBICIN [Suspect]
     Active Substance: DOXORUBICIN
     Indication: BREAST CANCER
  19. METOPROLOL. [Concomitant]
     Active Substance: METOPROLOL
     Dates: start: 200301
  20. HYDROCHLOROTHIAZIDE. [Concomitant]
     Active Substance: HYDROCHLOROTHIAZIDE
     Dates: start: 20080122

REACTIONS (1)
  - Alopecia [Not Recovered/Not Resolved]

NARRATIVE: CASE EVENT DATE: 201203
